FAERS Safety Report 24747812 (Version 1)
Quarter: 2024Q4

REPORT INFORMATION
  Report Type: Spontaneous
  Country: AU (occurrence: None)
  Receive Date: 20241217
  Receipt Date: 20241217
  Transmission Date: 20250115
  Serious: Yes (Disabling)
  Sender: Public
  Company Number: None

PATIENT
  Age: 87 Year
  Sex: Male
  Weight: 78 kg

DRUGS (22)
  1. TAMSULOSIN HYDROCHLORIDE [Suspect]
     Active Substance: TAMSULOSIN HYDROCHLORIDE
     Indication: Benign prostatic hyperplasia
     Dosage: 1 CAPSULE BY MOUTH ?
     Route: 050
     Dates: start: 20230909, end: 20231013
  2. AMLODIPINE BESYLATE\OLMESARTAN MEDOXOMIL [Suspect]
     Active Substance: AMLODIPINE BESYLATE\OLMESARTAN MEDOXOMIL
  3. FUROSEMIDE [Suspect]
     Active Substance: FUROSEMIDE
  4. ATORVASTATIN CALCIUM [Suspect]
     Active Substance: ATORVASTATIN CALCIUM
  5. PROLIA [Suspect]
     Active Substance: DENOSUMAB
  6. PREDNISOLONE [Suspect]
     Active Substance: PREDNISOLONE
  7. LEVOTHYROXINE SODIUM [Concomitant]
     Active Substance: LEVOTHYROXINE SODIUM
  8. clopigogrel [Concomitant]
  9. MD EYES [Concomitant]
  10. Lutein + Zeaxanthin [Concomitant]
  11. SYSTANE BALANCE [Concomitant]
     Active Substance: PROPYLENE GLYCOL
  12. MIRTAZAPINE [Concomitant]
     Active Substance: MIRTAZAPINE
  13. PREDNISOLONE [Concomitant]
     Active Substance: PREDNISOLONE
  14. OLMESARTAN [Concomitant]
     Active Substance: OLMESARTAN
  15. VITAMIN D3 [Concomitant]
     Active Substance: CHOLECALCIFEROL
  16. vitamin methyl b12 [Concomitant]
  17. glucosamine hydrachloride + chondroitin sulphate [Concomitant]
  18. ubiquinol-10 + Meniquinone 7 [Concomitant]
  19. MAGNESIUM [Concomitant]
     Active Substance: MAGNESIUM
  20. LECITHIN [Concomitant]
     Active Substance: LECITHIN
  21. VITAMIN C [Concomitant]
     Active Substance: ASCORBIC ACID
  22. broad spectrum probiotic [Concomitant]

REACTIONS (15)
  - Pain in extremity [None]
  - Myalgia [None]
  - Arthralgia [None]
  - Therapy cessation [None]
  - Muscle spasms [None]
  - Back pain [None]
  - Sarcoidosis [None]
  - Myositis [None]
  - Spontaneous haemorrhage [None]
  - Skin haemorrhage [None]
  - Epistaxis [None]
  - Intestinal haemorrhage [None]
  - Gait disturbance [None]
  - Dysstasia [None]
  - Muscular weakness [None]

NARRATIVE: CASE EVENT DATE: 20231013
